FAERS Safety Report 6834498-6 (Version None)
Quarter: 2010Q3

REPORT INFORMATION
  Report Type: 
  Country: None (occurrence: None)
  Receive Date: 20100712
  Receipt Date: 20070606
  Transmission Date: 20110219
  Serious: No
  Sender: FDA-Public Use
  Company Number: US-PFIZER INC-2007029144

PATIENT
  Weight: 89.36 kg

DRUGS (1)
  1. CHANTIX [Suspect]
     Indication: SMOKING CESSATION THERAPY
     Route: 048
     Dates: start: 20070323

REACTIONS (5)
  - ABDOMINAL PAIN UPPER [None]
  - HEADACHE [None]
  - INFLUENZA LIKE ILLNESS [None]
  - RASH [None]
  - TREMOR [None]
